FAERS Safety Report 4575568-5 (Version None)
Quarter: 2005Q1

REPORT INFORMATION
  Report Type: 
  Country: None (occurrence: None)
  Receive Date: 20050209
  Receipt Date: 20050202
  Transmission Date: 20050727
  Serious: Yes (Hospitalization, Other)
  Sender: FDA-Public Use
  Company Number: PHBS2005IE01848

PATIENT
  Age: 17 Year
  Sex: Female

DRUGS (2)
  1. VALPROATE SODIUM [Concomitant]
     Route: 065
  2. RITALIN [Suspect]
     Indication: ATTENTION DEFICIT/HYPERACTIVITY DISORDER
     Route: 048
     Dates: end: 20040501

REACTIONS (4)
  - ABNORMAL BEHAVIOUR [None]
  - ANGER [None]
  - CONVULSION [None]
  - ROAD TRAFFIC ACCIDENT [None]
